FAERS Safety Report 7302364-8 (Version None)
Quarter: 2011Q1

REPORT INFORMATION
  Report Type: 
  Country: None (occurrence: None)
  Receive Date: 20110218
  Receipt Date: 20110209
  Transmission Date: 20110831
  Serious: Yes (Death, Hospitalization)
  Sender: FDA-Public Use
  Company Number: JP-GENZYME-THYM-1002311

PATIENT
  Sex: Male
  Weight: 55 kg

DRUGS (4)
  1. METHYLPREDNISOLONE SODIUM SUCCINATE [Concomitant]
     Indication: GRAFT VERSUS HOST DISEASE
     Dosage: UNK
     Route: 065
     Dates: start: 20101207
  2. THYMOGLOBULIN [Suspect]
     Indication: ACUTE GRAFT VERSUS HOST DISEASE
     Dosage: 70 MG, UNK
     Route: 042
     Dates: start: 20101130, end: 20101130
  3. TACROLIMUS [Concomitant]
     Indication: ACUTE GRAFT VERSUS HOST DISEASE
     Dosage: UNK
     Route: 065
     Dates: start: 20100805, end: 20101118
  4. PREDNISOLONE [Concomitant]
     Indication: GRAFT VERSUS HOST DISEASE
     Dosage: UNK
     Route: 065
     Dates: start: 20100904, end: 20101208

REACTIONS (3)
  - GRAFT VERSUS HOST DISEASE [None]
  - ASPERGILLUS TEST POSITIVE [None]
  - CYTOMEGALOVIRUS TEST POSITIVE [None]
